FAERS Safety Report 5310375-7 (Version None)
Quarter: 2007Q2

REPORT INFORMATION
  Report Type: 
  Country: None (occurrence: None)
  Receive Date: 20070423
  Receipt Date: 20070417
  Transmission Date: 20071010
  Serious: Yes (Disabling)
  Sender: FDA-Public Use
  Company Number: 2007S1000085

PATIENT
  Age: 2 Day
  Sex: Male

DRUGS (4)
  1. NITRIC OXIDE [Suspect]
     Indication: LUNG DISORDER
     Dosage: 5 PPM; INH GAS; INH
     Route: 055
     Dates: start: 20070415
  2. NITRIC OXIDE [Suspect]
     Indication: PROPHYLAXIS
     Dosage: 5 PPM; INH GAS; INH
     Route: 055
     Dates: start: 20070415
  3. AMPICILLIN [Concomitant]
  4. GENTAMICIN [Concomitant]

REACTIONS (1)
  - INTRAVENTRICULAR HAEMORRHAGE NEONATAL [None]
